FAERS Safety Report 19755121 (Version 3)
Quarter: 2021Q3

REPORT INFORMATION
  Report Type: Report from Study
  Country: ES (occurrence: ES)
  Receive Date: 20210827
  Receipt Date: 20210928
  Transmission Date: 20211014
  Serious: No
  Sender: FDA-Public Use
  Company Number: ES-EMD SERONO-9260057

PATIENT
  Age: 38 Year
  Sex: Female

DRUGS (3)
  1. MAVENCLAD [Suspect]
     Active Substance: CLADRIBINE
     Indication: MULTIPLE SCLEROSIS
     Dosage: YEAR ONE FIRST CYCLE THERAPY
     Route: 048
     Dates: start: 20200825, end: 20200829
  2. MAVENCLAD [Suspect]
     Active Substance: CLADRIBINE
     Dosage: YEAR TWO CYCLE ONE THERAPY
     Route: 048
     Dates: start: 20210916
  3. MAVENCLAD [Suspect]
     Active Substance: CLADRIBINE
     Dosage: YEAR ONE SECOND CYCLE THERAPY
     Route: 048
     Dates: start: 20200925, end: 20200929

REACTIONS (2)
  - Fatigue [Unknown]
  - Lymphocyte count decreased [Recovering/Resolving]

NARRATIVE: CASE EVENT DATE: 202107
